FAERS Safety Report 22139080 (Version 1)
Quarter: 2023Q1

REPORT INFORMATION
  Report Type: Report from Study
  Country: US (occurrence: US)
  Receive Date: 20230327
  Receipt Date: 20230327
  Transmission Date: 20230418
  Serious: No
  Sender: FDA-Public Use
  Company Number: US-ACADIA PHARMACEUTICALS INC.-ACA-2023-PIM-000874

PATIENT
  Sex: Female

DRUGS (6)
  1. NUPLAZID [Suspect]
     Active Substance: PIMAVANSERIN TARTRATE
     Indication: Parkinson^s disease
     Dosage: 10 MILLIGRAM, QD
     Route: 048
     Dates: start: 202211
  2. CARBIDOPA\LEVODOPA [Concomitant]
     Active Substance: CARBIDOPA\LEVODOPA
  3. OMEPRAZOLE [Concomitant]
     Active Substance: OMEPRAZOLE
  4. B12 [MECOBALAMIN] [Concomitant]
  5. FAMOTIDINE [Concomitant]
     Active Substance: FAMOTIDINE
  6. LITHIUM [Concomitant]
     Active Substance: LITHIUM

REACTIONS (1)
  - Drug ineffective [Unknown]
